FAERS Safety Report 8997985 (Version 2)
Quarter: 2013Q4

REPORT INFORMATION
  Report Type: Spontaneous
  Country: US (occurrence: US)
  Receive Date: 20130104
  Receipt Date: 20131113
  Transmission Date: 20140711
  Serious: Yes (Other)
  Sender: FDA-Public Use
  Company Number: US-ROCHE-1176688

PATIENT
  Age: 48 Year
  Sex: Female
  Weight: 81.72 kg

DRUGS (3)
  1. ACCUTANE [Suspect]
     Indication: ACNE
     Route: 065
     Dates: start: 200904, end: 200907
  2. ACCUTANE [Suspect]
     Route: 065
     Dates: start: 20090408, end: 200908
  3. SOTRET [Suspect]
     Indication: ACNE
     Route: 065
     Dates: start: 200904, end: 200907

REACTIONS (9)
  - Colitis ulcerative [Unknown]
  - Injury [Unknown]
  - Depression [Unknown]
  - Irritable bowel syndrome [Unknown]
  - Dry skin [Unknown]
  - Lip blister [Unknown]
  - Arthralgia [Unknown]
  - Visual impairment [Unknown]
  - Skin ulcer [Unknown]
